FAERS Safety Report 14941911 (Version 1)
Quarter: 2018Q2

REPORT INFORMATION
  Report Type: Spontaneous
  Country: CN (occurrence: CN)
  Receive Date: 20180527
  Receipt Date: 20180527
  Transmission Date: 20180711
  Serious: Yes (Life-Threatening, Hospitalization, Other)
  Sender: FDA-Public Use
  Company Number: CN-NOVOPROD-601646

PATIENT
  Age: 75 Year
  Sex: Female
  Weight: 50 kg

DRUGS (1)
  1. NOVORAPID [Suspect]
     Active Substance: INSULIN ASPART
     Indication: TYPE 2 DIABETES MELLITUS
     Dosage: 18 U, BID
     Route: 058
     Dates: start: 20160301, end: 20180311

REACTIONS (3)
  - Pneumonia [Unknown]
  - Hypoglycaemic coma [Recovered/Resolved]
  - Hypoglycaemic encephalopathy [Recovered/Resolved]

NARRATIVE: CASE EVENT DATE: 20180311
